FAERS Safety Report 7951716-1 (Version None)
Quarter: 2011Q4

REPORT INFORMATION
  Report Type: 
  Country: None (occurrence: None)
  Receive Date: 20111201
  Receipt Date: 20111125
  Transmission Date: 20120403
  Serious: Yes (Other)
  Sender: FDA-Public Use
  Company Number: JP-JNJFOC-20111111089

PATIENT
  Age: 44 Year
  Sex: Male

DRUGS (6)
  1. BEZATOL [Concomitant]
     Route: 065
  2. VASTAREL [Concomitant]
     Route: 065
  3. LEVOFLOXACIN [Suspect]
     Indication: BRONCHITIS
     Route: 065
  4. PRAVASTATIN SODIUM [Concomitant]
     Route: 065
  5. LASIX [Concomitant]
     Route: 065
  6. ALLOPURINOL [Concomitant]
     Route: 065

REACTIONS (4)
  - DIARRHOEA [None]
  - DIZZINESS [None]
  - VISUAL FIELD DEFECT [None]
  - PALPITATIONS [None]
